FAERS Safety Report 9728939 (Version 1)
Quarter: 2013Q4

REPORT INFORMATION
  Report Type: Spontaneous
  Country: US (occurrence: US)
  Receive Date: 20131204
  Receipt Date: 20131204
  Transmission Date: 20140711
  Serious: Yes (Other)
  Sender: FDA-Public Use
  Company Number: US-RB-060454-13

PATIENT
  Age: 66 Year
  Sex: Female

DRUGS (2)
  1. DELSYM ADULT GRAPE LIQUID [Suspect]
     Indication: PRODUCT USED FOR UNKNOWN INDICATION
     Route: 048
     Dates: start: 20131126
  2. MELATONIN [Concomitant]
     Indication: SLEEP DISORDER

REACTIONS (4)
  - Hallucination [Recovered/Resolved]
  - Sleep talking [Unknown]
  - Fatigue [Unknown]
  - Intentional overdose [Unknown]
